FAERS Safety Report 12493821 (Version 1)
Quarter: 2016Q2

REPORT INFORMATION
  Report Type: Spontaneous
  Country: US (occurrence: US)
  Receive Date: 20160623
  Receipt Date: 20160623
  Transmission Date: 20160815
  Serious: No
  Sender: FDA-Public Use
  Company Number: US-VIVUS-2015V1000384

PATIENT
  Age: 59 Year
  Sex: Male
  Weight: 106.69 kg

DRUGS (1)
  1. STENDRA [Suspect]
     Active Substance: AVANAFIL
     Indication: ERECTILE DYSFUNCTION
     Dates: start: 20150707, end: 20150707

REACTIONS (6)
  - Dyspepsia [Recovered/Resolved]
  - Tinnitus [Not Recovered/Not Resolved]
  - Gastrointestinal tract irritation [Recovered/Resolved]
  - Drug ineffective [Not Recovered/Not Resolved]
  - Malaise [Recovered/Resolved]
  - Headache [Not Recovered/Not Resolved]

NARRATIVE: CASE EVENT DATE: 20150707
